FAERS Safety Report 5706661-9 (Version None)
Quarter: 2008Q2

REPORT INFORMATION
  Report Type: 
  Country: None (occurrence: None)
  Receive Date: 20080414
  Receipt Date: 20080414
  Transmission Date: 20081010
  Serious: Yes (Hospitalization)
  Sender: FDA-Public Use
  Company Number: None

PATIENT
  Age: 69 Year
  Sex: Male
  Weight: 59.8748 kg

DRUGS (8)
  1. DILANTIN [Suspect]
     Indication: EPILEPSY
     Dosage: 300MG AT BEDTIME PO
     Route: 048
     Dates: start: 20071110, end: 20080405
  2. TRAZODONE HCL [Concomitant]
  3. AMANTADINE HCL [Concomitant]
  4. MIRAPEX [Concomitant]
  5. SINEMET [Concomitant]
  6. FLOMAX [Concomitant]
  7. DILANTIN [Concomitant]
  8. KLONOPIN [Concomitant]

REACTIONS (6)
  - ASTHENIA [None]
  - DYSSTASIA [None]
  - PAIN [None]
  - RENAL FAILURE ACUTE [None]
  - RHABDOMYOLYSIS [None]
  - URINARY TRACT INFECTION [None]
